FAERS Safety Report 15609774 (Version 2)
Quarter: 2020Q2

REPORT INFORMATION
  Report Type: Spontaneous
  Country: CA (occurrence: CA)
  Receive Date: 20181113
  Receipt Date: 20200528
  Transmission Date: 20200713
  Serious: Yes (Disabling)
  Sender: FDA-Public Use
  Company Number: CA-AMGEN-CANSP2018158204

PATIENT
  Sex: Male

DRUGS (17)
  1. DILTIAZEM. [Concomitant]
     Active Substance: DILTIAZEM
  2. LIPITOR [Suspect]
     Active Substance: ATORVASTATIN CALCIUM
     Indication: PRODUCT USED FOR UNKNOWN INDICATION
     Dosage: 40 MG, UNK
     Route: 065
  3. CARDIZEM [Concomitant]
     Active Substance: DILTIAZEM HYDROCHLORIDE
  4. TECFIDERA [Concomitant]
     Active Substance: DIMETHYL FUMARATE
  5. REPATHA [Suspect]
     Active Substance: EVOLOCUMAB
     Indication: HYPERLIPIDAEMIA
     Dosage: 140 MG, UNK
     Route: 058
  6. SEMPERA [Concomitant]
     Active Substance: ITRACONAZOLE
  7. EZETROL [Suspect]
     Active Substance: EZETIMIBE
     Indication: PRODUCT USED FOR UNKNOWN INDICATION
     Route: 048
  8. METOPROLOL. [Concomitant]
     Active Substance: METOPROLOL
  9. TAMSULOSIN HYDROCHLORIDE. [Concomitant]
     Active Substance: TAMSULOSIN HYDROCHLORIDE
  10. ACETYLSALICYLIC ACID [Concomitant]
     Active Substance: ASPIRIN
  11. ITRACONAZOLE. [Concomitant]
     Active Substance: ITRACONAZOLE
  12. ROSUVASTATIN CALCIUM. [Concomitant]
     Active Substance: ROSUVASTATIN CALCIUM
  13. REPATHA [Suspect]
     Active Substance: EVOLOCUMAB
     Indication: HYPERLIPIDAEMIA
  14. BRILINTA [Concomitant]
     Active Substance: TICAGRELOR
  15. CRESTOR [Concomitant]
     Active Substance: ROSUVASTATIN CALCIUM
  16. RIVASA [Concomitant]
     Active Substance: ASPIRIN
  17. VITAMIN D [Concomitant]
     Active Substance: VITAMIN D NOS

REACTIONS (4)
  - Muscle disorder [Recovered/Resolved]
  - Gait inability [Recovered/Resolved]
  - Intentional product misuse [Recovered/Resolved]
  - Low density lipoprotein increased [Recovered/Resolved]
